APPROVED DRUG PRODUCT: ERYTHROMYCIN LACTOBIONATE
Active Ingredient: ERYTHROMYCIN LACTOBIONATE
Strength: EQ 1GM BASE/VIAL
Dosage Form/Route: INJECTABLE;INJECTION
Application: A063253 | Product #002
Applicant: TEVA PARENTERAL MEDICINES INC
Approved: Jul 30, 1993 | RLD: No | RS: No | Type: DISCN